FAERS Safety Report 20016167 (Version 1)
Quarter: 2021Q4

REPORT INFORMATION
  Report Type: Spontaneous
  Country: US (occurrence: None)
  Receive Date: 20211103
  Receipt Date: 20211103
  Transmission Date: 20220303
  Serious: No
  Sender: FDA-Public Use
  Company Number: None

PATIENT
  Age: 79 Year
  Sex: Male
  Weight: 107 kg

DRUGS (1)
  1. CASIRIVIMAB\IMDEVIMAB [Suspect]
     Active Substance: CASIRIVIMAB\IMDEVIMAB
     Indication: COVID-19
     Dates: start: 20211101, end: 20211101

REACTIONS (8)
  - Chills [None]
  - Nausea [None]
  - Vomiting [None]
  - Diarrhoea [None]
  - Body temperature increased [None]
  - Fatigue [None]
  - Asthenia [None]
  - Cough [None]

NARRATIVE: CASE EVENT DATE: 20211101
